FAERS Safety Report 6899596-X (Version None)
Quarter: 2010Q3

REPORT INFORMATION
  Report Type: 
  Country: None (occurrence: None)
  Receive Date: 20100729
  Receipt Date: 20100720
  Transmission Date: 20110219
  Serious: Yes (Disabling, Other)
  Sender: FDA-Public Use
  Company Number: 016050

PATIENT
  Sex: Female

DRUGS (1)
  1. XYZAL [Suspect]

REACTIONS (1)
  - OPTIC NERVE DISORDER [None]
